FAERS Safety Report 4927446-7 (Version None)
Quarter: 2006Q1

REPORT INFORMATION
  Report Type: 
  Country: None (occurrence: None)
  Receive Date: 20060213
  Receipt Date: 20060104
  Transmission Date: 20060701
  Serious: Yes (Hospitalization)
  Sender: FDA-Public Use
  Company Number: LIT-001-06-JP

PATIENT
  Age: 2 Year
  Sex: Male

DRUGS (3)
  1. IMMUNE GLOBULIN INTRAVENOUS (HUMAN) [Suspect]
     Indication: HUMAN HERPESVIRUS 6 INFECTION
     Dosage: 1000MG/KG IV
     Route: 042
  2. PHENYTOIN [Concomitant]
  3. MIDAZOLAM HCL [Concomitant]

REACTIONS (2)
  - ASTHENIA [None]
  - ENCEPHALOPATHY [None]
